FAERS Safety Report 16861769 (Version 4)
Quarter: 2023Q1

REPORT INFORMATION
  Report Type: Report from Study
  Country: CO (occurrence: CO)
  Receive Date: 20190927
  Receipt Date: 20230202
  Transmission Date: 20230417
  Serious: Yes (Hospitalization)
  Sender: FDA-Public Use
  Company Number: CO-002147023-PHHY2019CO219252

PATIENT

DRUGS (2)
  1. RUXOLITINIB [Suspect]
     Active Substance: RUXOLITINIB
     Indication: Myelofibrosis
     Dosage: 20 MG, QD (2 DAILY DOSES/2 EVERY 12 HOURS)
     Route: 048
     Dates: start: 201905
  2. RUXOLITINIB [Suspect]
     Active Substance: RUXOLITINIB
     Dosage: 40 MG, QD
     Route: 048

REACTIONS (16)
  - Abdominal wall abscess [Unknown]
  - Staphylococcal abscess [Unknown]
  - Cellulitis [Recovering/Resolving]
  - Fistula [Unknown]
  - Furuncle [Unknown]
  - Red blood cell sedimentation rate increased [Unknown]
  - Headache [Unknown]
  - Haematocrit decreased [Unknown]
  - Inflammatory marker increased [Unknown]
  - Inappropriate schedule of product administration [Unknown]
  - Platelet count increased [Unknown]
  - Abscess [Unknown]
  - Contusion [Unknown]
  - Rash macular [Unknown]
  - Skin hypertrophy [Unknown]
  - Fatigue [Unknown]

NARRATIVE: CASE EVENT DATE: 20190701
